FAERS Safety Report 17810881 (Version 2)
Quarter: 2020Q2

REPORT INFORMATION
  Report Type: Spontaneous
  Country: US (occurrence: US)
  Receive Date: 20200521
  Receipt Date: 20200624
  Transmission Date: 20200714
  Serious: No
  Sender: FDA-Public Use
  Company Number: US-GLAXOSMITHKLINE-US2020AMR084659

PATIENT
  Sex: Female

DRUGS (3)
  1. ZEJULA [Suspect]
     Active Substance: NIRAPARIB
     Indication: OVARIAN CANCER
     Dosage: 200 MG, QD, TWO CAPSULES AT BEDTIME DAILY
     Dates: start: 20200501
  2. OLMESARTAN [Concomitant]
     Active Substance: OLMESARTAN
     Indication: HYPERTENSION
     Dosage: UNK
  3. ZEJULA [Suspect]
     Active Substance: NIRAPARIB
     Dosage: 200 MG, QD, TWO CAPSULES AT BEDTIME DAILY

REACTIONS (5)
  - Memory impairment [Unknown]
  - Blood pressure increased [Unknown]
  - Laboratory test abnormal [Unknown]
  - Hypertension [Unknown]
  - Product dose omission [Unknown]
